FAERS Safety Report 7765537-6 (Version None)
Quarter: 2011Q3

REPORT INFORMATION
  Report Type: 
  Country: None (occurrence: None)
  Receive Date: 20110906
  Receipt Date: 20110512
  Transmission Date: 20111222
  Serious: No
  Sender: FDA-Public Use
  Company Number: 201104033

PATIENT
  Age: 66 Year
  Sex: Female

DRUGS (3)
  1. MARCAINE [Suspect]
  2. XIAFLEX [Suspect]
     Indication: DUPUYTREN'S CONTRACTURE
     Dosage: 0.58 MG, 1 IN 1 D, INTRALESIONAL
     Route: 026
     Dates: start: 20110406, end: 20110406
  3. LIDOCAINE [Suspect]
     Dosage: 2 ML

REACTIONS (6)
  - DISCOMFORT [None]
  - ERYTHEMA [None]
  - LACERATION [None]
  - INDURATION [None]
  - ECCHYMOSIS [None]
  - OEDEMA PERIPHERAL [None]
